FAERS Safety Report 5060852-1 (Version None)
Quarter: 2006Q3

REPORT INFORMATION
  Report Type: 
  Country: None (occurrence: None)
  Receive Date: 20060725
  Receipt Date: 20060718
  Transmission Date: 20061208
  Serious: Yes (Other)
  Sender: FDA-Public Use
  Company Number: FR-GLAXOSMITHKLINE-B0431780A

PATIENT
  Sex: Female

DRUGS (1)
  1. ARIXTRA [Suspect]
     Indication: SUPERIOR VENA CAVAL OCCLUSION
     Dosage: 7.5MG PER DAY
     Route: 058
     Dates: start: 20060712, end: 20060717

REACTIONS (4)
  - BLOOD BILIRUBIN INCREASED [None]
  - HEPATITIS CHOLESTATIC [None]
  - PROTHROMBIN LEVEL DECREASED [None]
  - TRANSAMINASES INCREASED [None]
